FAERS Safety Report 15322309 (Version 1)
Quarter: 2018Q3

REPORT INFORMATION
  Report Type: Spontaneous
  Country: US (occurrence: US)
  Receive Date: 20180821
  Receipt Date: 20180821
  Transmission Date: 20181010
  Serious: Yes (Hospitalization)
  Sender: FDA-Public Use
  Company Number: None

PATIENT
  Age: 46 Year
  Sex: Male

DRUGS (2)
  1. AVASTIN [Suspect]
     Active Substance: BEVACIZUMAB
     Route: 042
  2. EYLEA [Suspect]
     Active Substance: AFLIBERCEPT
     Route: 042
     Dates: start: 20180622

REACTIONS (4)
  - Nausea [None]
  - Loss of consciousness [None]
  - Silent myocardial infarction [None]
  - Vomiting [None]

NARRATIVE: CASE EVENT DATE: 20180801
